FAERS Safety Report 19798189 (Version 1)
Quarter: 2021Q3

REPORT INFORMATION
  Report Type: Spontaneous
  Country: US (occurrence: US)
  Receive Date: 20210903
  Receipt Date: 20210903
  Transmission Date: 20211014
  Serious: No
  Sender: FDA-Public Use
  Company Number: None

PATIENT
  Age: 23 Year
  Weight: 83.91 kg

DRUGS (2)
  1. CASIRIVIMAB. [Suspect]
     Active Substance: CASIRIVIMAB
     Indication: COVID-19
     Route: 042
  2. IMDEVIMAB. [Suspect]
     Active Substance: IMDEVIMAB
     Indication: COVID-19
     Route: 042

REACTIONS (8)
  - Pruritus [None]
  - Ear pruritus [None]
  - Dyspnoea [None]
  - Nausea [None]
  - Tongue pruritus [None]
  - Oral pruritus [None]
  - Chest discomfort [None]
  - Dysphonia [None]

NARRATIVE: CASE EVENT DATE: 20210825
